FAERS Safety Report 7772555-0 (Version None)
Quarter: 2011Q3

REPORT INFORMATION
  Report Type: 
  Country: None (occurrence: None)
  Receive Date: 20110922
  Receipt Date: 20110317
  Transmission Date: 20111222
  Serious: No
  Sender: FDA-Public Use
  Company Number: US-ASTRAZENECA-2011SE15264

PATIENT
  Age: 7 Year
  Sex: Male
  Weight: 45.4 kg

DRUGS (4)
  1. DEPAKOTE [Concomitant]
     Route: 048
  2. SEROQUEL [Suspect]
     Indication: ATTENTION DEFICIT/HYPERACTIVITY DISORDER
     Route: 048
  3. LAMICTAL [Concomitant]
     Route: 048
  4. SEROQUEL [Suspect]
     Indication: BIPOLAR DISORDER
     Route: 048

REACTIONS (4)
  - DRUG INEFFECTIVE [None]
  - ATTENTION-SEEKING BEHAVIOUR [None]
  - WEIGHT INCREASED [None]
  - CONDUCT DISORDER [None]
